FAERS Safety Report 8596310 (Version 4)
Quarter: 2016Q2

REPORT INFORMATION
  Report Type: Report from Study
  Country: CA (occurrence: CA)
  Receive Date: 20120605
  Receipt Date: 20160520
  Transmission Date: 20160815
  Serious: Yes (Other)
  Sender: FDA-Public Use
  Company Number: PHHY2012CA016990

PATIENT
  Sex: Female

DRUGS (1)
  1. GILENYA [Suspect]
     Active Substance: FINGOLIMOD HYDROCHLORIDE
     Indication: RELAPSING-REMITTING MULTIPLE SCLEROSIS
     Dosage: 0.5 MG, QD
     Route: 048
     Dates: start: 20120109, end: 20160517

REACTIONS (5)
  - Optic neuritis [Recovering/Resolving]
  - Bruxism [Unknown]
  - Neck pain [Unknown]
  - Visual acuity reduced [Recovering/Resolving]
  - Headache [Unknown]
